FAERS Safety Report 18383904 (Version 1)
Quarter: 2020Q4

REPORT INFORMATION
  Report Type: Other
  Country: CN (occurrence: CN)
  Receive Date: 20201014
  Receipt Date: 20201014
  Transmission Date: 20210114
  Serious: Yes (Life-Threatening, Other)
  Sender: FDA-Public Use
  Company Number: CN-DEXPHARM-20200929

PATIENT
  Age: 17 Year
  Sex: Male

DRUGS (13)
  1. PEGASPARAGINASE [Concomitant]
     Active Substance: PEGASPARGASE
  2. TRAMADOL. [Concomitant]
     Active Substance: TRAMADOL
  3. LEUCOVORIN. [Concomitant]
     Active Substance: LEUCOVORIN
  4. NIMODIPINE. [Concomitant]
     Active Substance: NIMODIPINE
  5. CICLOSPORIN [Suspect]
     Active Substance: CYCLOSPORINE
     Indication: HAEMOPHAGOCYTIC LYMPHOHISTIOCYTOSIS
  6. GEMCITABINE. [Concomitant]
     Active Substance: GEMCITABINE
  7. ETOPOSIDE. [Suspect]
     Active Substance: ETOPOSIDE
     Indication: HAEMOPHAGOCYTIC LYMPHOHISTIOCYTOSIS
  8. DEXAMETHASONE. [Suspect]
     Active Substance: DEXAMETHASONE
     Indication: HAEMOPHAGOCYTIC LYMPHOHISTIOCYTOSIS
  9. DEXAMETHASONE. [Suspect]
     Active Substance: DEXAMETHASONE
     Indication: HAEMOPHAGOCYTIC LYMPHOHISTIOCYTOSIS
  10. NIMODIPINE. [Concomitant]
     Active Substance: NIMODIPINE
  11. METHOTREXATE. [Suspect]
     Active Substance: METHOTREXATE
  12. OXALIPLATIN. [Concomitant]
     Active Substance: OXALIPLATIN
  13. DEXAMETHASONE. [Suspect]
     Active Substance: DEXAMETHASONE
     Indication: HAEMOPHAGOCYTIC LYMPHOHISTIOCYTOSIS

REACTIONS (2)
  - Drug ineffective [Unknown]
  - Drug interaction [Unknown]
